FAERS Safety Report 6846389-5 (Version None)
Quarter: 2010Q3

REPORT INFORMATION
  Report Type: 
  Country: None (occurrence: None)
  Receive Date: 20100715
  Receipt Date: 20090925
  Transmission Date: 20110219
  Serious: No
  Sender: FDA-Public Use
  Company Number: US-PFIZER INC-2007076698

PATIENT
  Sex: Female
  Weight: 91.63 kg

DRUGS (11)
  1. CHANTIX [Suspect]
     Indication: SMOKING CESSATION THERAPY
     Dosage: 0.5 MG, 1X/DAY
     Dates: start: 20070801
  2. PREDNISONE TAB [Suspect]
     Indication: DYSPNOEA
     Dosage: UNK
     Dates: end: 20090718
  3. CELEXA [Concomitant]
     Dosage: 60 MG, 1X/DAY
  4. KLONOPIN [Concomitant]
     Dosage: UNK
  5. SEROQUEL [Concomitant]
     Dosage: UNK
  6. LISINOPRIL [Concomitant]
     Dosage: 200 MG, UNK
  7. ATENOLOL [Concomitant]
     Dosage: 50 MG, UNK
  8. EFFEXOR [Concomitant]
     Dosage: UNK
  9. PREVACID [Concomitant]
     Dosage: UNK
  10. METFORMIN [Concomitant]
     Dosage: UNK
  11. DARVON [Concomitant]
     Dosage: UNK

REACTIONS (5)
  - ANXIETY [None]
  - DEPRESSION [None]
  - FEAR [None]
  - NAUSEA [None]
  - NERVOUSNESS [None]
